FAERS Safety Report 22089535 (Version 1)
Quarter: 2023Q1

REPORT INFORMATION
  Report Type: Spontaneous
  Country: US (occurrence: None)
  Receive Date: 20230311
  Receipt Date: 20230311
  Transmission Date: 20230418
  Serious: No
  Sender: FDA-Public Use
  Company Number: None

PATIENT
  Age: 42 Year
  Sex: Male
  Weight: 83.25 kg

DRUGS (4)
  1. PREDNISOLONE ACETATE [Suspect]
     Active Substance: PREDNISOLONE ACETATE
     Indication: Uveitis
     Dosage: OTHER QUANTITY : 1 DROP(S);?OTHER FREQUENCY : EVERY 2 HOURS;?
     Route: 047
     Dates: start: 20230310, end: 20230311
  2. CYCLOPENTOLTAE [Concomitant]
  3. IBUPROFEN [Concomitant]
     Active Substance: IBUPROFEN
  4. CHLORPHENIRAMINE MALEATE [Concomitant]
     Active Substance: CHLORPHENIRAMINE MALEATE

REACTIONS (5)
  - Tinnitus [None]
  - Paraesthesia [None]
  - Throat tightness [None]
  - Headache [None]
  - Therapy non-responder [None]

NARRATIVE: CASE EVENT DATE: 20230310
